FAERS Safety Report 7569131-1 (Version None)
Quarter: 2011Q2

REPORT INFORMATION
  Report Type: 
  Country: None (occurrence: None)
  Receive Date: 20110623
  Receipt Date: 20110615
  Transmission Date: 20111010
  Serious: Yes (Life-Threatening, Hospitalization, Other)
  Sender: FDA-Public Use
  Company Number: US-CELGENEUS-163-21880-11040955

PATIENT
  Sex: Female

DRUGS (5)
  1. REVLIMID [Suspect]
     Indication: MULTIPLE MYELOMA
     Dosage: 25 MILLIGRAM
     Route: 048
     Dates: start: 20110203, end: 20110330
  2. ALLOPURINOL [Concomitant]
     Dosage: 300 MILLIGRAM
     Route: 065
     Dates: start: 20110419
  3. PHENERGAN HCL [Concomitant]
     Indication: NAUSEA
     Dosage: 12.5 MILLIGRAM
     Route: 065
     Dates: start: 20110603
  4. DEXAMETHASONE [Suspect]
     Indication: PREMEDICATION
     Dosage: 4 MILLIGRAM
     Route: 065
     Dates: start: 20110223, end: 20110330
  5. ASPIRIN [Suspect]
     Route: 065

REACTIONS (3)
  - RENAL FAILURE [None]
  - TUMOUR LYSIS SYNDROME [None]
  - MULTI-ORGAN FAILURE [None]
